FAERS Safety Report 6820289-9 (Version None)
Quarter: 2010Q3

REPORT INFORMATION
  Report Type: 
  Country: None (occurrence: None)
  Receive Date: 20100707
  Receipt Date: 20100628
  Transmission Date: 20110219
  Serious: Yes (Other)
  Sender: FDA-Public Use
  Company Number: FR-JNJFOC-20100608012

PATIENT
  Age: 21 Year
  Sex: Male

DRUGS (6)
  1. TOPIRAMATE [Suspect]
     Indication: EPILEPSY
     Route: 048
  2. GARDENAL [Suspect]
     Indication: EPILEPSY
     Route: 048
  3. VIMPAT [Suspect]
     Indication: EPILEPSY
     Route: 048
  4. ALPRAZOLAM [Suspect]
     Indication: EPILEPSY
     Route: 048
  5. CLOBAZAM [Suspect]
     Indication: EPILEPSY
     Route: 048
  6. VENLAFAXINE [Suspect]
     Indication: EPILEPSY
     Route: 048

REACTIONS (1)
  - PRIAPISM [None]
